FAERS Safety Report 9893741 (Version 2)
Quarter: 2014Q1

REPORT INFORMATION
  Report Type: Spontaneous
  Country: US (occurrence: US)
  Receive Date: 20140213
  Receipt Date: 20140218
  Transmission Date: 20141002
  Serious: Yes (Hospitalization, Other)
  Sender: FDA-Public Use
  Company Number: US-PFIZER INC-2014040352

PATIENT
  Age: 61 Year
  Sex: Female
  Weight: 149.66 kg

DRUGS (4)
  1. LYRICA [Suspect]
     Indication: FIBROMYALGIA
     Dosage: 100MG IN MORNING AND 200MG AT NIGHT, 2X/DAY
  2. LYRICA [Suspect]
     Dosage: 200 MG IN THE MORNING AND 100 MG AT NIGHT
  3. ARTHROTEC [Suspect]
     Indication: ARTHRITIS
     Dosage: 75 MG, 2X/DAY
  4. COUMADIN [Concomitant]
     Indication: THROMBOSIS
     Dosage: UNK

REACTIONS (2)
  - Infected cyst [Unknown]
  - Malaise [Unknown]
